FAERS Safety Report 17972132 (Version 1)
Quarter: 2020Q3

REPORT INFORMATION
  Report Type: Spontaneous
  Country: JP (occurrence: JP)
  Receive Date: 20200701
  Receipt Date: 20200701
  Transmission Date: 20201103
  Serious: Yes (Hospitalization)
  Sender: FDA-Public Use
  Company Number: JP-BAUSCH-BL-2020-018005

PATIENT
  Age: 62 Year
  Sex: Female

DRUGS (4)
  1. OFLOXACIN. [Concomitant]
     Active Substance: OFLOXACIN
     Indication: KERATOUVEITIS
     Route: 065
     Dates: start: 199808, end: 199808
  2. ACYCLOVIR. [Suspect]
     Active Substance: ACYCLOVIR
     Indication: KERATOUVEITIS
     Route: 061
     Dates: start: 199808, end: 199808
  3. BETAMETHASONE. [Concomitant]
     Active Substance: BETAMETHASONE
     Indication: KERATOUVEITIS
     Route: 061
     Dates: start: 199808, end: 199808
  4. ACYCLOVIR. [Concomitant]
     Active Substance: ACYCLOVIR
     Indication: HERPES ZOSTER
     Route: 065
     Dates: start: 199808, end: 1998

REACTIONS (1)
  - Ulcerative keratitis [Recovering/Resolving]

NARRATIVE: CASE EVENT DATE: 19980808
